FAERS Safety Report 21896130 (Version 1)
Quarter: 2023Q1

REPORT INFORMATION
  Report Type: Spontaneous
  Country: US (occurrence: US)
  Receive Date: 20230123
  Receipt Date: 20230123
  Transmission Date: 20230418
  Serious: No
  Sender: FDA-Public Use
  Company Number: US-BRISTOL-MYERS SQUIBB COMPANY-2023-009705

PATIENT
  Age: 67 Year
  Sex: Female
  Weight: 108.86 kg

DRUGS (2)
  1. ELIQUIS [Suspect]
     Active Substance: APIXABAN
     Indication: Thrombosis
     Dosage: DOSE : 5MG;     FREQ : TWICE PER DAY
     Route: 048
     Dates: start: 20220921
  2. ALBUTEROL [Concomitant]
     Active Substance: ALBUTEROL
     Indication: Thrombosis

REACTIONS (3)
  - Peripheral swelling [Unknown]
  - Hyperphagia [Unknown]
  - Weight increased [Unknown]

NARRATIVE: CASE EVENT DATE: 20230101
